FAERS Safety Report 15114815 (Version 1)
Quarter: 2018Q3

REPORT INFORMATION
  Report Type: Spontaneous
  Country: US (occurrence: US)
  Receive Date: 20180706
  Receipt Date: 20180706
  Transmission Date: 20181010
  Serious: Yes (Other)
  Sender: FDA-Public Use
  Company Number: US-ENDO PHARMACEUTICALS INC-2018-025808

PATIENT
  Sex: Female
  Weight: 55.33 kg

DRUGS (15)
  1. CALCITONIN [Suspect]
     Active Substance: CALCITONIN
     Indication: OSTEOPENIA
     Dosage: 1 PUFF UD QD, NASAL
     Route: 045
     Dates: start: 2011, end: 201712
  2. ACIPHEX [Concomitant]
     Active Substance: RABEPRAZOLE SODIUM
     Indication: GASTROOESOPHAGEAL REFLUX DISEASE
     Dosage: 20 MG, OD
     Route: 065
     Dates: start: 2000
  3. METOPROLOL SUCCINATE. [Concomitant]
     Active Substance: METOPROLOL SUCCINATE
     Indication: BLOOD PRESSURE ABNORMAL
     Dosage: 25 MG, OD
     Route: 048
     Dates: start: 2017
  4. PEPCID                             /00305201/ [Concomitant]
     Active Substance: ALUMINUM HYDROXIDE\MAGNESIUM CARBONATE
     Dosage: 20 MG, PRN
  5. RESTORIL [Concomitant]
     Active Substance: TEMAZEPAM
     Dosage: 15 MG, PRN
  6. OXYCODONE HCL 5MG [Concomitant]
     Active Substance: OXYCODONE
     Dosage: 5 MG, Q4H
  7. NITROGLYCERIN. [Concomitant]
     Active Substance: NITROGLYCERIN
     Indication: RAYNAUD^S PHENOMENON
     Dosage: 2% OINTMENT
     Route: 062
  8. ONDANSETRON [Concomitant]
     Active Substance: ONDANSETRON
     Dosage: 4 MG, TID
     Route: 060
  9. ASPIRIN                            /00002701/ [Concomitant]
     Active Substance: ASPIRIN
     Indication: ISCHAEMIC HEART DISEASE PROPHYLAXIS
     Dosage: 81 MG, OD
     Route: 065
  10. LORAZEPAM TABLETS 0.5MG [Concomitant]
     Active Substance: LORAZEPAM
     Indication: INSOMNIA
     Dosage: 0.5 MG, PRN
  11. NITROSTAT [Concomitant]
     Active Substance: NITROGLYCERIN
     Indication: CHEST PAIN
     Dosage: SUBLINGUAL AS DIRECTED FOR CHEST PAIN
     Route: 060
  12. CALCITONIN [Suspect]
     Active Substance: CALCITONIN
     Dosage: 1 PUFF IN ALTERNATE NOSTRILS ONCE A DAY
     Route: 045
  13. PRALUENT [Concomitant]
     Active Substance: ALIROCUMAB
     Dosage: 75 MG/DL, UNK
  14. CHLOR [Concomitant]
  15. ZENPEP [Concomitant]
     Active Substance: PANCRELIPASE AMYLASE\PANCRELIPASE LIPASE\PANCRELIPASE PROTEASE
     Dosage: 25000 UNITS, UNK
     Route: 048

REACTIONS (4)
  - Nasal oedema [Unknown]
  - Product use issue [Unknown]
  - Tongue neoplasm malignant stage unspecified [Unknown]
  - Nasal cavity mass [Unknown]

NARRATIVE: CASE EVENT DATE: 2011
